FAERS Safety Report 5409993-7 (Version None)
Quarter: 2007Q3

REPORT INFORMATION
  Report Type: 
  Country: None (occurrence: None)
  Receive Date: 20070809
  Receipt Date: 20070405
  Transmission Date: 20080115
  Serious: Yes (Hospitalization)
  Sender: FDA-Public Use
  Company Number: HQWYE888106APR07

PATIENT
  Sex: Female
  Weight: 64.6 kg

DRUGS (13)
  1. SIROLIMUS [Suspect]
     Indication: PROPHYLAXIS AGAINST TRANSPLANT REJECTION
     Route: 048
     Dates: start: 20070306
  2. FOLIC ACID [Concomitant]
     Indication: ANAEMIA PROPHYLAXIS
     Route: 048
     Dates: start: 20070309
  3. FEROBA [Concomitant]
     Indication: ANAEMIA PROPHYLAXIS
     Dosage: 256.26 MG, 2 TABLETS DAILY
     Route: 048
     Dates: start: 20070309
  4. MOTILIUM [Concomitant]
     Indication: DYSPEPSIA
     Route: 048
     Dates: start: 20070307
  5. METHYLPREDNISOLONE 16MG TAB [Suspect]
     Route: 065
     Dates: end: 20070101
  6. METHYLPREDNISOLONE 16MG TAB [Suspect]
     Route: 065
  7. FAMOTIDINE [Concomitant]
     Indication: PROPHYLAXIS AGAINST GASTROINTESTINAL ULCER
     Route: 048
     Dates: start: 20070305
  8. PYRIDOXINE HCL [Concomitant]
     Indication: ANAEMIA PROPHYLAXIS
     Route: 048
     Dates: start: 20070305
  9. MAGNESIUM OXIDE [Concomitant]
     Indication: CONSTIPATION
     Route: 048
     Dates: start: 20070309
  10. CARVEDILOL [Concomitant]
     Indication: HYPERTENSION
     Route: 048
     Dates: start: 20070228
  11. MYCOSTATIN [Concomitant]
     Indication: PROPHYLAXIS
     Route: 048
     Dates: start: 20070305
  12. CYCLOSPORINE [Concomitant]
     Indication: PROPHYLAXIS AGAINST TRANSPLANT REJECTION
     Route: 048
     Dates: start: 20070303
  13. ULCERMIN [Concomitant]
     Indication: PROPHYLAXIS AGAINST GASTROINTESTINAL ULCER
     Route: 048
     Dates: start: 20070307

REACTIONS (2)
  - CONDITION AGGRAVATED [None]
  - DIABETES MELLITUS INADEQUATE CONTROL [None]
